FAERS Safety Report 6822787-0 (Version None)
Quarter: 2010Q3

REPORT INFORMATION
  Report Type: 
  Country: None (occurrence: None)
  Receive Date: 20100708
  Receipt Date: 20100630
  Transmission Date: 20110219
  Serious: Yes (Hospitalization)
  Sender: FDA-Public Use
  Company Number: DE-ROCHE-713075

PATIENT
  Sex: Female
  Weight: 77 kg

DRUGS (5)
  1. BEVACIZUMAB [Suspect]
     Indication: BREAST CANCER
     Dosage: ON DAY 1, TEMPORARILY INTERRUPTED, DATE OF LAST DOSE PRIOR TO SAE 14 MAY 2010
     Route: 042
     Dates: start: 20100203
  2. CAPECITABINE [Suspect]
     Indication: BREAST CANCER
     Dosage: TEMPORARILY INTERRUPTED, DATE OF LAST DOSE PRIOR TO SAE 16 MAY 2010
     Route: 065
     Dates: start: 20100203
  3. VINORELBINE [Suspect]
     Indication: BREAST CANCER
     Dosage: TEMPORARILY INTERRUPTED, DATE OF LAST DOSE PRIOR TO SAE 14 MAY 2010, DAYS 1+8
     Route: 042
     Dates: start: 20100203
  4. ESIDRIX [Concomitant]
  5. BUPRENORPHIN [Concomitant]
     Dosage: DAILU: 35UG/H

REACTIONS (1)
  - BRONCHOSPASM [None]
